FAERS Safety Report 19230888 (Version 2)
Quarter: 2022Q1

REPORT INFORMATION
  Report Type: Report from Study
  Country: US (occurrence: US)
  Receive Date: 20210507
  Receipt Date: 20220222
  Transmission Date: 20220423
  Serious: Yes (Hospitalization, Other)
  Sender: FDA-Public Use
  Company Number: US-TAKEDA-US202017329

PATIENT
  Sex: Male

DRUGS (1)
  1. HUMAN IMMUNOGLOBULIN G [Suspect]
     Active Substance: HUMAN IMMUNOGLOBULIN G
     Indication: Immunodeficiency common variable
     Dosage: 50 GRAM, EVERY 4 WK
     Route: 042

REACTIONS (5)
  - Autoimmune hepatitis [Unknown]
  - Hepatic cancer [Unknown]
  - Vein rupture [Unknown]
  - Hepatic cirrhosis [Unknown]
  - Headache [Unknown]

NARRATIVE: CASE EVENT DATE: 20210101
